FAERS Safety Report 8452773-9 (Version None)
Quarter: 2012Q2

REPORT INFORMATION
  Report Type: 
  Country: None (occurrence: None)
  Receive Date: 20120620
  Receipt Date: 20120517
  Transmission Date: 20120825
  Serious: Yes (Hospitalization)
  Sender: FDA-Public Use
  Company Number: US-VERTEX PHARMACEUTICALS INC.-AE-2012-005965

PATIENT
  Sex: Female
  Weight: 63.56 kg

DRUGS (3)
  1. INCIVEK [Suspect]
     Indication: HEPATITIS C
     Dates: start: 20120420, end: 20120517
  2. RIBAVIRIN [Concomitant]
     Indication: HEPATITIS C
     Route: 048
     Dates: start: 20120420, end: 20120517
  3. PEGASYS [Concomitant]
     Indication: HEPATITIS C
     Route: 058
     Dates: start: 20120420, end: 20120517

REACTIONS (12)
  - GASTROOESOPHAGEAL REFLUX DISEASE [None]
  - DYSPEPSIA [None]
  - ASTHENIA [None]
  - RASH [None]
  - OCULAR ICTERUS [None]
  - FEELING COLD [None]
  - DECREASED APPETITE [None]
  - NAUSEA [None]
  - DISORIENTATION [None]
  - VOMITING [None]
  - ABDOMINAL PAIN UPPER [None]
  - FATIGUE [None]
